FAERS Safety Report 8808093 (Version 1)
Quarter: 2012Q4

REPORT INFORMATION
  Report Type: 
  Country: AU (occurrence: AU)
  Receive Date: 20120925
  Receipt Date: 20120925
  Transmission Date: 20130627
  Serious: Yes (Other)
  Sender: FDA-Public Use
  Company Number: AU-ROCHE-1127624

PATIENT

DRUGS (4)
  1. VESANOID [Suspect]
     Indication: ACUTE PROMYELOCYTIC LEUKAEMIA
     Route: 048
  2. IDARUBICIN HYDROCHLORIDE [Suspect]
     Indication: ACUTE PROMYELOCYTIC LEUKAEMIA
     Dosage: dose was age adjusted
     Route: 042
  3. ARSENIC TRIOXIDE [Suspect]
     Indication: ACUTE PROMYELOCYTIC LEUKAEMIA
     Dosage: Drug name ATO
     Route: 042
  4. PREDNISONE [Concomitant]
     Indication: PROPHYLAXIS
     Route: 048

REACTIONS (38)
  - Cardiotoxicity [Unknown]
  - Electrocardiogram QT prolonged [Unknown]
  - Hepatic failure [Unknown]
  - Blood bilirubin increased [Unknown]
  - Alanine aminotransferase increased [Unknown]
  - Aspartate aminotransferase increased [Unknown]
  - Headache [Unknown]
  - Gamma-glutamyltransferase increased [Unknown]
  - Nausea [Unknown]
  - Vomiting [Unknown]
  - Squamous cell carcinoma of skin [Unknown]
  - Mucosal inflammation [Unknown]
  - Enterocolitis [Unknown]
  - Dizziness [Unknown]
  - Mood altered [Unknown]
  - Musculoskeletal pain [Unknown]
  - Convulsion [Unknown]
  - Hyperglycaemia [Unknown]
  - Hypertriglyceridaemia [Unknown]
  - Hypoalbuminaemia [Unknown]
  - Hypokalaemia [Unknown]
  - Hypophosphataemia [Unknown]
  - Renal failure [Unknown]
  - Sepsis [Unknown]
  - Respiratory tract infection [Unknown]
  - Urinary tract infection [Unknown]
  - Gastrointestinal infection [Unknown]
  - Skin infection [Unknown]
  - Wound infection [Unknown]
  - Viral infection [Unknown]
  - Fungal infection [Unknown]
  - Neuropathy peripheral [Unknown]
  - Rash [Unknown]
  - Diarrhoea [Unknown]
  - Retinoic acid syndrome [Unknown]
  - Febrile neutropenia [Unknown]
  - Dyspnoea [Unknown]
  - Hypoxia [Unknown]
